FAERS Safety Report 8916554 (Version 1)
Quarter: 2012Q4

REPORT INFORMATION
  Report Type: 
  Country: AU (occurrence: AU)
  Receive Date: 20121120
  Receipt Date: 20121120
  Transmission Date: 20130627
  Serious: Yes (Life-Threatening)
  Sender: FDA-Public Use
  Company Number: AU-ROCHE-753917

PATIENT
  Age: 64 Year
  Sex: Male

DRUGS (8)
  1. CEFTRIAXONE SODIUM [Suspect]
     Indication: PRODUCT USED FOR UNKNOWN INDICATION
     Dosage: FREQUENCY: DAILY.
     Route: 042
     Dates: start: 20100303, end: 20100304
  2. AMPICILLIN [Suspect]
     Indication: PRODUCT USED FOR UNKNOWN INDICATION
     Dosage: FREQUENCY: DAILY.
     Route: 042
     Dates: start: 20100302, end: 20100303
  3. GENTAMICIN SULPHATE [Suspect]
     Indication: PRODUCT USED FOR UNKNOWN INDICATION
     Dosage: FREQUENCY: DAILY.
     Route: 042
     Dates: start: 20100302, end: 20100303
  4. ENDONE [Concomitant]
     Route: 065
  5. KARVEZIDE [Concomitant]
     Dosage: DRUG NAME REPORTED AS: KARVEZIDE 300/12.5.
     Route: 065
  6. MAXOLON [Concomitant]
     Route: 065
  7. METOPROLOL SUCCINATE [Concomitant]
     Route: 065
  8. PANTOPRAZOLE [Concomitant]

REACTIONS (2)
  - Anaphylactic reaction [Recovered/Resolved]
  - Renal failure acute [Recovered/Resolved]
